FAERS Safety Report 17195467 (Version 1)
Quarter: 2019Q4

REPORT INFORMATION
  Report Type: Spontaneous
  Country: US (occurrence: US)
  Receive Date: 20191223
  Receipt Date: 20191223
  Transmission Date: 20200122
  Serious: Yes (Other)
  Sender: FDA-Public Use
  Company Number: None

PATIENT
  Age: 54 Year
  Sex: Male
  Weight: 75.5 kg

DRUGS (1)
  1. SODIUM HEPARIN [Suspect]
     Active Substance: HEPARIN SODIUM
     Indication: CATHETERISATION CARDIAC
     Dosage: ?          OTHER FREQUENCY:DEPENDS ON ACT;?
     Route: 040
     Dates: start: 20191219, end: 20191219

REACTIONS (3)
  - Anticoagulation drug level below therapeutic [None]
  - Therapeutic product effect decreased [None]
  - Coagulation time [None]

NARRATIVE: CASE EVENT DATE: 20191219
